FAERS Safety Report 9812590 (Version 5)
Quarter: 2014Q2

REPORT INFORMATION
  Report Type: Spontaneous
  Country: US (occurrence: US)
  Receive Date: 20140113
  Receipt Date: 20140502
  Transmission Date: 20141212
  Serious: Yes (Hospitalization, Other)
  Sender: FDA-Public Use
  Company Number: US-009507513-1312USA011808

PATIENT
  Age: 56 Year
  Sex: Male

DRUGS (7)
  1. PEGINTRON [Suspect]
     Indication: HEPATITIS C
     Dosage: 0.5 ML, QW
     Route: 058
     Dates: start: 20131225
  2. PEGINTRON [Suspect]
     Dosage: UNK
     Route: 058
  3. REBETOL [Suspect]
     Indication: HEPATITIS C
     Dosage: 600MG-AM/800MG PM, 1400 MG, BID
     Route: 048
     Dates: start: 20131225
  4. VICTRELIS [Suspect]
     Indication: HEPATITIS C
     Dosage: 2400 MG, TID
     Route: 048
     Dates: start: 20140122
  5. BENICAR [Concomitant]
     Dosage: 40MG/12.5MG
  6. BYSTOLIC [Concomitant]
     Dosage: 10 MG, UNK
  7. METFORMIN [Concomitant]
     Dosage: 1500 MG

REACTIONS (11)
  - Transfusion [Unknown]
  - Hypotension [Unknown]
  - Blood disorder [Unknown]
  - Dyspnoea [Unknown]
  - Headache [Unknown]
  - Chills [Unknown]
  - Accidental exposure to product [Unknown]
  - Fatigue [Unknown]
  - Dysgeusia [Unknown]
  - Weight decreased [Unknown]
  - Fatigue [Unknown]
